FAERS Safety Report 5083867-6 (Version None)
Quarter: 2006Q3

REPORT INFORMATION
  Report Type: 
  Country: None (occurrence: None)
  Receive Date: 20060727
  Receipt Date: 20060418
  Transmission Date: 20061208
  Serious: Yes (Other)
  Sender: FDA-Public Use
  Company Number: 2006052556

PATIENT
  Sex: Female

DRUGS (12)
  1. LYRICA [Suspect]
     Indication: ILL-DEFINED DISORDER
  2. BENTYL [Concomitant]
  3. MIRAPEX [Concomitant]
  4. PREMARIN [Concomitant]
  5. ATENOLOL [Concomitant]
  6. LISINOPRIL [Concomitant]
  7. FUROSEMIDE [Concomitant]
  8. KLOR-CON [Concomitant]
  9. ALL OTHER THERAPEUTIC PRODUCTS (ALL OTHER THERAPEUTIC PRODUCTS) [Concomitant]
  10. FLEXERIL [Concomitant]
  11. QUININE SULFATE [Concomitant]
  12. PREVACID [Concomitant]

REACTIONS (2)
  - FORMICATION [None]
  - RASH [None]
